FAERS Safety Report 7750707-3 (Version None)
Quarter: 2011Q3

REPORT INFORMATION
  Report Type: 
  Country: None (occurrence: None)
  Receive Date: 20110914
  Receipt Date: 20110906
  Transmission Date: 20111222
  Serious: Yes (Other)
  Sender: FDA-Public Use
  Company Number: US-JNJFOC-20110902802

PATIENT
  Sex: Male

DRUGS (3)
  1. METHOTREXATE [Concomitant]
     Route: 065
  2. REMICADE [Suspect]
     Indication: RHEUMATOID ARTHRITIS
     Route: 042
     Dates: start: 20050401, end: 20100101
  3. PAIN MEDICATION (NOS) [Concomitant]
     Route: 065

REACTIONS (4)
  - FATIGUE [None]
  - MASS [None]
  - DIFFUSE LARGE B-CELL LYMPHOMA [None]
  - DRUG DEPENDENCE [None]
